FAERS Safety Report 8270842-3 (Version None)
Quarter: 2012Q2

REPORT INFORMATION
  Report Type: 
  Country: None (occurrence: None)
  Receive Date: 20120410
  Receipt Date: 20120410
  Transmission Date: 20120825
  Serious: Yes (Death)
  Sender: FDA-Public Use
  Company Number: None

PATIENT
  Age: 76 Year
  Sex: Female
  Weight: 109.76 kg

DRUGS (12)
  1. CYMBALTA [Concomitant]
     Route: 048
  2. LEVOTHYROXINE SODIUM [Concomitant]
     Route: 048
  3. METOPROLOL TARTRATE [Concomitant]
     Route: 048
  4. ALDACTONE [Concomitant]
     Route: 048
  5. LASIX [Concomitant]
     Route: 048
  6. CLONIDINE [Concomitant]
  7. AZACTAM [Concomitant]
     Route: 042
  8. TYGACIL [Concomitant]
     Route: 042
  9. LACTOBACILLUS [Concomitant]
     Route: 048
  10. ZANTAC [Concomitant]
     Route: 048
  11. ALLOPURINOL [Concomitant]
     Route: 048
  12. PRADAXA [Suspect]
     Indication: ATRIAL FIBRILLATION
     Dosage: 150 MG
     Route: 048
     Dates: start: 20111001, end: 20120308

REACTIONS (2)
  - GASTROINTESTINAL HAEMORRHAGE [None]
  - KIDNEY INFECTION [None]
